FAERS Safety Report 9932381 (Version 1)
Quarter: 2014Q1

REPORT INFORMATION
  Report Type: Spontaneous
  Country: US (occurrence: US)
  Receive Date: 20140228
  Receipt Date: 20140228
  Transmission Date: 20141002
  Serious: No
  Sender: FDA-Public Use
  Company Number: US-GLAXOSMITHKLINE-A1009677A

PATIENT
  Age: 79 Year
  Sex: Female

DRUGS (2)
  1. LAMICTAL [Suspect]
     Indication: COMPLEX PARTIAL SEIZURES
     Dates: start: 20121203
  2. VIMPAT [Suspect]
     Indication: COMPLEX PARTIAL SEIZURES

REACTIONS (2)
  - Pruritus [Not Recovered/Not Resolved]
  - Asthenia [Recovered/Resolved]
